FAERS Safety Report 13296875 (Version 1)
Quarter: 2017Q1

REPORT INFORMATION
  Report Type: Spontaneous
  Country: US (occurrence: US)
  Receive Date: 20170306
  Receipt Date: 20170306
  Transmission Date: 20170428
  Serious: Yes (Other)
  Sender: FDA-Public Use
  Company Number: US-TEVA-2016-02568

PATIENT
  Age: 50 Year
  Sex: Female

DRUGS (1)
  1. TAMOXIFEN [Suspect]
     Active Substance: TAMOXIFEN
     Indication: BREAST CANCER METASTATIC
     Route: 048
     Dates: start: 2013

REACTIONS (6)
  - Bone pain [Recovering/Resolving]
  - Malignant neoplasm progression [Recovering/Resolving]
  - Drug effect decreased [Recovered/Resolved]
  - Pleural effusion [Recovering/Resolving]
  - Hypercalcaemia [Recovering/Resolving]
  - Breast cancer [Recovering/Resolving]

NARRATIVE: CASE EVENT DATE: 201509
